FAERS Safety Report 5841100-9 (Version None)
Quarter: 2008Q3

REPORT INFORMATION
  Report Type: 
  Country: None (occurrence: None)
  Receive Date: 20080811
  Receipt Date: 20080811
  Transmission Date: 20090109
  Serious: Yes (Life-Threatening)
  Sender: FDA-Public Use
  Company Number: None

PATIENT
  Age: 32 Year
  Sex: Male
  Weight: 72.5755 kg

DRUGS (2)
  1. PAROXETINE HCL [Suspect]
     Indication: ILL-DEFINED DISORDER
     Dosage: 60MG DAILY PO
     Route: 048
     Dates: start: 19910812, end: 20080808
  2. EFFEXOR [Suspect]
     Indication: GENERALISED ANXIETY DISORDER
     Dosage: 225MG DAILY PO
     Route: 048
     Dates: start: 19920306, end: 20080808

REACTIONS (21)
  - ACNE [None]
  - AMNESIA [None]
  - BURNING SENSATION [None]
  - CENTRAL PAIN SYNDROME [None]
  - CONFUSIONAL STATE [None]
  - DRUG WITHDRAWAL SYNDROME [None]
  - FATIGUE [None]
  - FEELING ABNORMAL [None]
  - FORMICATION [None]
  - HEADACHE [None]
  - ILL-DEFINED DISORDER [None]
  - INFLAMMATION [None]
  - MENTAL DISORDER [None]
  - MOVEMENT DISORDER [None]
  - NERVOUS SYSTEM DISORDER [None]
  - NEURALGIA [None]
  - PAIN [None]
  - PARAESTHESIA [None]
  - SEROTONIN SYNDROME [None]
  - SLUGGISHNESS [None]
  - VOMITING [None]
